FAERS Safety Report 4747213-7 (Version None)
Quarter: 2005Q3

REPORT INFORMATION
  Report Type: 
  Country: None (occurrence: None)
  Receive Date: 20050815
  Receipt Date: 20050803
  Transmission Date: 20060218
  Serious: Yes (Death)
  Sender: FDA-Public Use
  Company Number: MK200410-0186-3

PATIENT
  Age: 55 Year
  Sex: Male

DRUGS (1)
  1. CONRAY [Suspect]
     Dosage: ONCE, IT
     Route: 037
     Dates: start: 20041011, end: 20041011

REACTIONS (15)
  - ACETABULUM FRACTURE [None]
  - FAT EMBOLISM [None]
  - FRACTURE [None]
  - HAEMORRHAGE [None]
  - JOINT DISLOCATION [None]
  - LACERATION [None]
  - LUMBAR VERTEBRAL FRACTURE [None]
  - MEDICATION ERROR [None]
  - MUSCLE CONTRACTIONS INVOLUNTARY [None]
  - MUSCLE SPASMS [None]
  - PELVIC FRACTURE [None]
  - PUBIC RAMI FRACTURE [None]
  - PULMONARY EMBOLISM [None]
  - RETROPERITONEAL HAEMATOMA [None]
  - VASCULAR INJURY [None]
